FAERS Safety Report 10399120 (Version 1)
Quarter: 2014Q3

REPORT INFORMATION
  Report Type: Spontaneous
  Country: US (occurrence: None)
  Receive Date: 20140818
  Receipt Date: 20140818
  Transmission Date: 20150326
  Serious: Yes (Disabling, Other)
  Sender: FDA-Public Use
  Company Number: None

PATIENT
  Age: 65 Year
  Sex: Female
  Weight: 135.63 kg

DRUGS (1)
  1. METFORMIN [Suspect]
     Active Substance: METFORMIN HYDROCHLORIDE
     Indication: TYPE 2 DIABETES MELLITUS
     Route: 048
     Dates: start: 20140225, end: 20140817

REACTIONS (11)
  - Pruritus [None]
  - Malaise [None]
  - Headache [None]
  - Muscle spasms [None]
  - Flank pain [None]
  - Pain [None]
  - Diarrhoea [None]
  - Heart rate irregular [None]
  - Pyrexia [None]
  - Nausea [None]
  - Asthenia [None]

NARRATIVE: CASE EVENT DATE: 20140817
